FAERS Safety Report 6745834-3 (Version None)
Quarter: 2010Q2

REPORT INFORMATION
  Report Type: 
  Country: None (occurrence: None)
  Receive Date: 20100528
  Receipt Date: 20100524
  Transmission Date: 20101027
  Serious: Yes (Life-Threatening, Hospitalization, Other)
  Sender: FDA-Public Use
  Company Number: MY-ROXANE LABORATORIES, INC.-2010-RO-00626RO

PATIENT
  Age: 32 Year
  Sex: Female

DRUGS (4)
  1. LITHIUM CARBONATE CAP [Suspect]
     Indication: BIPOLAR DISORDER
     Dosage: 900 MG
  2. LORAZEPAM [Suspect]
     Indication: BIPOLAR DISORDER
  3. CLOMAZAPINE [Suspect]
     Indication: BIPOLAR DISORDER
     Dosage: 10 MG
  4. BENZHEXOL [Suspect]
     Indication: BIPOLAR DISORDER
     Dosage: 12 MG

REACTIONS (3)
  - CENTRAL NERVOUS SYSTEM LESION [None]
  - HYPERNATRAEMIA [None]
  - NEUROLEPTIC MALIGNANT SYNDROME [None]
